FAERS Safety Report 11892148 (Version 1)
Quarter: 2016Q1

REPORT INFORMATION
  Report Type: Spontaneous
  Country: US (occurrence: US)
  Receive Date: 20160106
  Receipt Date: 20160106
  Transmission Date: 20160526
  Serious: No
  Sender: FDA-Public Use
  Company Number: US-ASTRAZENECA-2015SF27327

PATIENT
  Sex: Male

DRUGS (19)
  1. PERCOCET [Concomitant]
     Active Substance: ACETAMINOPHEN\OXYCODONE HYDROCHLORIDE
  2. REQUIP [Concomitant]
     Active Substance: ROPINIROLE HYDROCHLORIDE
  3. PRILOSEC [Suspect]
     Active Substance: OMEPRAZOLE MAGNESIUM
     Indication: BARRETT^S OESOPHAGUS
     Route: 048
  4. VITAMIN D3 [Concomitant]
     Active Substance: CHOLECALCIFEROL
  5. PREVACID [Concomitant]
     Active Substance: LANSOPRAZOLE
  6. CELEBREX [Concomitant]
     Active Substance: CELECOXIB
  7. NEXIUM [Suspect]
     Active Substance: ESOMEPRAZOLE MAGNESIUM
     Route: 048
  8. LOVASTATIN. [Concomitant]
     Active Substance: LOVASTATIN
  9. MOVANTIK [Suspect]
     Active Substance: NALOXEGOL OXALATE
     Route: 048
  10. PRILOSEC [Suspect]
     Active Substance: OMEPRAZOLE MAGNESIUM
     Indication: GASTROOESOPHAGEAL REFLUX DISEASE
     Route: 048
  11. ALLOPURINOL. [Concomitant]
     Active Substance: ALLOPURINOL
  12. PRILOSEC [Suspect]
     Active Substance: OMEPRAZOLE MAGNESIUM
     Indication: GASTRIC ULCER
     Route: 048
  13. HCTZ [Concomitant]
     Active Substance: HYDROCHLOROTHIAZIDE
  14. MULTIVITAMIN [Concomitant]
     Active Substance: VITAMINS
  15. FENTANYL. [Concomitant]
     Active Substance: FENTANYL
     Dosage: EVERY 72 HOURS
  16. CLARITIN D 24 [Concomitant]
  17. NORVASC [Concomitant]
     Active Substance: AMLODIPINE BESYLATE
  18. HYTRIN [Concomitant]
     Active Substance: TERAZOSIN HYDROCHLORIDE
  19. COLACE [Concomitant]
     Active Substance: DOCUSATE SODIUM

REACTIONS (6)
  - Heart rate increased [Unknown]
  - Vitamin D decreased [Unknown]
  - Helicobacter gastritis [Unknown]
  - Product use issue [Unknown]
  - Dermatitis [Unknown]
  - Off label use [Unknown]
